FAERS Safety Report 22634345 (Version 2)
Quarter: 2023Q2

REPORT INFORMATION
  Report Type: Spontaneous
  Country: US (occurrence: US)
  Receive Date: 20230623
  Receipt Date: 20230626
  Transmission Date: 20230722
  Serious: No
  Sender: FDA-Public Use
  Company Number: US-JNJFOC-20230654053

PATIENT
  Age: 52 Year
  Sex: Female
  Weight: 72.64 kg

DRUGS (3)
  1. ELMIRON [Suspect]
     Active Substance: PENTOSAN POLYSULFATE SODIUM
     Indication: Cystitis interstitial
     Route: 048
     Dates: end: 202303
  2. SYNTHROID [Concomitant]
     Active Substance: LEVOTHYROXINE SODIUM
     Indication: Product used for unknown indication
  3. DICLOFENAC [Concomitant]
     Active Substance: DICLOFENAC
     Indication: Product used for unknown indication

REACTIONS (4)
  - Pain [Unknown]
  - Vision blurred [Unknown]
  - Discomfort [Unknown]
  - Product prescribing error [Unknown]
